FAERS Safety Report 9857930 (Version 1)
Quarter: 2014Q1

REPORT INFORMATION
  Report Type: Spontaneous
  Country: VN (occurrence: VN)
  Receive Date: 20140131
  Receipt Date: 20140131
  Transmission Date: 20141002
  Serious: Yes (Death, Other)
  Sender: FDA-Public Use
  Company Number: VN-AMGEN-VNMSP2014006439

PATIENT
  Sex: 0

DRUGS (1)
  1. FILGRASTIM [Suspect]
     Indication: HAEMATOPOIETIC STEM CELL MOBILISATION
     Dosage: 10 MUG/KG/DAY DEVIDED INTO 2 TIMES
     Route: 058

REACTIONS (19)
  - Headache [Recovered/Resolved]
  - Death [Fatal]
  - Nausea [Recovered/Resolved]
  - Vomiting [Recovered/Resolved]
  - Diarrhoea [Recovered/Resolved]
  - Renal failure [Not Recovered/Not Resolved]
  - Pneumonia [Recovered/Resolved]
  - Febrile neutropenia [Recovered/Resolved]
  - Soft tissue inflammation [Recovered/Resolved]
  - Neutropenia [Recovered/Resolved]
  - Urinary tract infection [Recovered/Resolved]
  - Hypoaesthesia oral [Recovered/Resolved]
  - Muscle spasms [Recovered/Resolved]
  - Oral mucosa erosion [Recovered/Resolved]
  - Blood bilirubin increased [Recovered/Resolved]
  - Hepatitis [Recovered/Resolved]
  - Bone pain [Recovered/Resolved]
  - Hyperuricaemia [Unknown]
  - Blood lactate dehydrogenase increased [Not Recovered/Not Resolved]
